FAERS Safety Report 7711651-0 (Version None)
Quarter: 2011Q3

REPORT INFORMATION
  Report Type: 
  Country: None (occurrence: None)
  Receive Date: 20110826
  Receipt Date: 20110706
  Transmission Date: 20111222
  Serious: No
  Sender: FDA-Public Use
  Company Number: US-BRISTOL-MYERS SQUIBB COMPANY-15877970

PATIENT
  Age: 79 Year
  Sex: Female

DRUGS (3)
  1. ONGLYZA [Suspect]
     Dosage: USING ABOUT A MONTH.
  2. GLYBURIDE [Concomitant]
  3. METFORMIN HCL [Concomitant]

REACTIONS (2)
  - VOMITING [None]
  - NAUSEA [None]
